FAERS Safety Report 6536953-5 (Version None)
Quarter: 2010Q1

REPORT INFORMATION
  Report Type: 
  Country: None (occurrence: None)
  Receive Date: 20100105
  Receipt Date: 20091221
  Transmission Date: 20100710
  Serious: Yes (Congenital Anomaly)
  Sender: FDA-Public Use
  Company Number: AUR-APL-2009-01646

PATIENT

DRUGS (6)
  1. ONDANSETRON [Suspect]
     Indication: VOMITING
     Dosage: 4MG-BID/TID-TRANSPLACEN
     Route: 064
     Dates: start: 20080112
  2. CYCLIZINE [Concomitant]
  3. FOLIC ACID [Concomitant]
  4. METOCLOPRAMIDE [Concomitant]
  5. PROMETHAZINE [Concomitant]
  6. THIAMINE [Concomitant]

REACTIONS (10)
  - ABORTION INDUCED [None]
  - CONGENITAL DIAPHRAGMATIC ANOMALY [None]
  - CONGENITAL HYDRONEPHROSIS [None]
  - FOETAL GROWTH RETARDATION [None]
  - GASTROSCHISIS [None]
  - HEART DISEASE CONGENITAL [None]
  - MATERNAL DRUGS AFFECTING FOETUS [None]
  - PULMONARY HYPOPLASIA [None]
  - SCOLIOSIS [None]
  - SPINE MALFORMATION [None]
